FAERS Safety Report 9742729 (Version 2)
Quarter: 2015Q3

REPORT INFORMATION
  Report Type: Spontaneous
  Country: US (occurrence: US)
  Receive Date: 20131210
  Receipt Date: 20150805
  Transmission Date: 20151125
  Serious: No
  Sender: FDA-Public Use
  Company Number: US-GILEAD-2009-0025851

PATIENT
  Age: 56 Year
  Sex: Female
  Weight: 131.54 kg

DRUGS (21)
  1. DARVOCET-N 100 [Concomitant]
     Active Substance: ACETAMINOPHEN\PROPOXYPHENE NAPSYLATE
  2. LOPRESSOR [Concomitant]
     Active Substance: METOPROLOL TARTRATE
  3. ASPIRIN. [Concomitant]
     Active Substance: ASPIRIN
  4. NORVASC [Concomitant]
     Active Substance: AMLODIPINE BESYLATE
  5. REVATIO [Concomitant]
     Active Substance: SILDENAFIL CITRATE
  6. SINGULAIR [Concomitant]
     Active Substance: MONTELUKAST SODIUM
  7. REGLAN [Concomitant]
     Active Substance: METOCLOPRAMIDE HYDROCHLORIDE
  8. LASIX [Concomitant]
     Active Substance: FUROSEMIDE
  9. FLONASE [Concomitant]
     Active Substance: FLUTICASONE PROPIONATE
  10. XOPENEX HFA [Concomitant]
     Active Substance: LEVALBUTEROL TARTRATE
  11. PROTONIX [Concomitant]
     Active Substance: PANTOPRAZOLE SODIUM
  12. HUMALOG [Concomitant]
     Active Substance: INSULIN LISPRO
  13. ZOCOR [Concomitant]
     Active Substance: SIMVASTATIN
  14. XANAX [Concomitant]
     Active Substance: ALPRAZOLAM
  15. PLAVIX [Concomitant]
     Active Substance: CLOPIDOGREL BISULFATE
  16. LETAIRIS [Suspect]
     Active Substance: AMBRISENTAN
     Indication: PULMONARY ARTERIAL HYPERTENSION
     Route: 048
     Dates: start: 20091113
  17. AMBIEN [Concomitant]
     Active Substance: ZOLPIDEM TARTRATE
  18. DIOVAN [Concomitant]
     Active Substance: VALSARTAN
  19. ALLEGRA-D 12 HOUR [Concomitant]
  20. PROZAC [Concomitant]
     Active Substance: FLUOXETINE HYDROCHLORIDE
  21. COLACE T [Concomitant]

REACTIONS (2)
  - Oedema [Unknown]
  - Headache [Unknown]
